FAERS Safety Report 9172452 (Version 2)
Quarter: 2013Q1

REPORT INFORMATION
  Report Type: Spontaneous
  Country: AU (occurrence: AU)
  Receive Date: 20130319
  Receipt Date: 20130328
  Transmission Date: 20140127
  Serious: Yes (Death, Other)
  Sender: FDA-Public Use
  Company Number: AU-B.I. PHARMACEUTICALS,INC./RIDGEFIELD-2013-AU-00307AU

PATIENT
  Age: 86 Year
  Sex: Male
  Weight: 64 kg

DRUGS (8)
  1. PRADAXA [Suspect]
     Indication: CEREBROVASCULAR ACCIDENT PROPHYLAXIS
     Dosage: 220 MG
     Dates: start: 20110907, end: 20130220
  2. PRADAXA [Suspect]
     Indication: ATRIAL FIBRILLATION
  3. DIABEX [Concomitant]
     Dates: start: 20110704, end: 20130220
  4. LANOXIN [Concomitant]
     Dates: start: 20110530, end: 20130220
  5. LASIX [Concomitant]
     Dates: start: 20110530, end: 20130220
  6. LIPITOR [Concomitant]
     Dates: start: 20110530, end: 20130220
  7. MICARDIS [Concomitant]
     Dates: start: 20121102, end: 20130220
  8. PARIET [Concomitant]
     Dates: start: 20110530, end: 20130220

REACTIONS (5)
  - Cerebral infarction [Fatal]
  - Acute myocardial infarction [Unknown]
  - Pneumonia [Unknown]
  - Loss of consciousness [Unknown]
  - Unresponsive to stimuli [Unknown]
